FAERS Safety Report 9529277 (Version 2)
Quarter: 2013Q4

REPORT INFORMATION
  Report Type: Report from Study
  Country: US (occurrence: US)
  Receive Date: 20130917
  Receipt Date: 20131017
  Transmission Date: 20140711
  Serious: Yes (Other)
  Sender: FDA-Public Use
  Company Number: US-ALEXION-A201302158

PATIENT
  Age: 34 Year
  Sex: Female
  Weight: 48.5 kg

DRUGS (3)
  1. SOLIRIS [Suspect]
     Indication: PAROXYSMAL NOCTURNAL HAEMOGLOBINURIA
     Dosage: UNK
     Route: 042
     Dates: end: 20130123
  2. SOLIRIS [Suspect]
     Dosage: UNK
     Route: 042
     Dates: start: 201309
  3. CYCLOSPORIN [Concomitant]
     Dosage: 125 MG, QD

REACTIONS (9)
  - Blood lactate dehydrogenase increased [Recovering/Resolving]
  - Haematocrit decreased [Recovering/Resolving]
  - Ocular icterus [Not Recovered/Not Resolved]
  - Dyspnoea [Not Recovered/Not Resolved]
  - Chromaturia [Unknown]
  - Alopecia [Not Recovered/Not Resolved]
  - Headache [Unknown]
  - Abdominal pain [Not Recovered/Not Resolved]
  - Fatigue [Not Recovered/Not Resolved]
